FAERS Safety Report 17571422 (Version 1)
Quarter: 2020Q1

REPORT INFORMATION
  Report Type: Spontaneous
  Country: CA (occurrence: CA)
  Receive Date: 20200323
  Receipt Date: 20200323
  Transmission Date: 20200409
  Serious: Yes (Life-Threatening, Hospitalization)
  Sender: FDA-Public Use
  Company Number: CA-TEVA-2020-CA-1212017

PATIENT
  Age: 64 Year
  Sex: Female
  Weight: 93 kg

DRUGS (6)
  1. CALCIUM [Concomitant]
     Active Substance: CALCIUM
  2. MAGNESIUM [Concomitant]
     Active Substance: MAGNESIUM
  3. REACTINE [Concomitant]
  4. VITAMIN D [Concomitant]
     Active Substance: VITAMIN D NOS
  5. TAMOXIFEN [Suspect]
     Active Substance: TAMOXIFEN
     Indication: OESTROGEN RECEPTOR POSITIVE BREAST CANCER
     Dosage: 20 MILLIGRAM DAILY;
     Route: 048
  6. VITAMIN C [Concomitant]
     Active Substance: ASCORBIC ACID

REACTIONS (12)
  - Pulmonary embolism [Recovering/Resolving]
  - Venous thrombosis limb [Recovering/Resolving]
  - Pain in extremity [Recovering/Resolving]
  - Dyspnoea [Recovering/Resolving]
  - Oxygen therapy [Recovering/Resolving]
  - Joint swelling [Recovering/Resolving]
  - Loss of consciousness [Recovering/Resolving]
  - Arthralgia [Recovering/Resolving]
  - Myocardial ischaemia [Recovering/Resolving]
  - Hyperhidrosis [Recovering/Resolving]
  - Limb injury [Recovering/Resolving]
  - Pallor [Recovering/Resolving]
